FAERS Safety Report 23145718 (Version 2)
Quarter: 2024Q1

REPORT INFORMATION
  Report Type: Spontaneous
  Country: JP (occurrence: JP)
  Receive Date: 20231103
  Receipt Date: 20240103
  Transmission Date: 20240410
  Serious: Yes (Hospitalization)
  Sender: FDA-Public Use
  Company Number: JP-Eisai-202306089_LEN-RCC_P_1

PATIENT
  Age: 57 Year
  Sex: Male

DRUGS (6)
  1. LENVIMA [Suspect]
     Active Substance: LENVATINIB
     Indication: Renal cell carcinoma
     Route: 048
     Dates: start: 202308, end: 202308
  2. LENVIMA [Suspect]
     Active Substance: LENVATINIB
     Dosage: DOSE AND FREQUENCY UNKNOWN
     Route: 048
     Dates: start: 2023, end: 2023
  3. LENVIMA [Suspect]
     Active Substance: LENVATINIB
     Dosage: DOSE AND FREQUENCY UNKNOWN.
     Route: 048
     Dates: start: 2023
  4. KEYTRUDA [Suspect]
     Active Substance: PEMBROLIZUMAB
     Indication: Renal cell carcinoma
     Route: 042
     Dates: start: 202308, end: 202308
  5. KEYTRUDA [Suspect]
     Active Substance: PEMBROLIZUMAB
     Dosage: DOSE AND FREQUENCY UNKNOWN.
     Route: 042
     Dates: start: 2023, end: 2023
  6. OXYCODONE HYDROCHLORIDE [Suspect]
     Active Substance: OXYCODONE HYDROCHLORIDE
     Indication: Cancer pain
     Dosage: DOSE AND FREQUENCY UNKNOWN.
     Route: 048
     Dates: end: 202308

REACTIONS (2)
  - Depressed level of consciousness [Recovering/Resolving]
  - Ophthalmoplegia [Unknown]

NARRATIVE: CASE EVENT DATE: 20230801
